FAERS Safety Report 7772577-X (Version None)
Quarter: 2011Q3

REPORT INFORMATION
  Report Type: 
  Country: None (occurrence: None)
  Receive Date: 20110922
  Receipt Date: 20110920
  Transmission Date: 20111222
  Serious: Yes (Death, Hospitalization, Other)
  Sender: FDA-Public Use
  Company Number: JP-ABBOTT-11P-087-0856263-00

PATIENT
  Age: 76 Year
  Sex: Male

DRUGS (3)
  1. ATORVASTATIN CALCIUM [Concomitant]
     Indication: HYPERLIPIDAEMIA
     Route: 048
     Dates: start: 20100405
  2. HUMIRA [Suspect]
     Indication: RHEUMATOID ARTHRITIS
     Route: 058
     Dates: start: 20110419, end: 20110830
  3. FAMOTIDINE [Concomitant]
     Indication: GASTRITIS PROPHYLAXIS
     Route: 048
     Dates: start: 20090810

REACTIONS (9)
  - STREPTOCOCCAL SEPSIS [None]
  - HAEMOPTYSIS [None]
  - DYSPNOEA [None]
  - BETA HAEMOLYTIC STREPTOCOCCAL INFECTION [None]
  - HYPOXIA [None]
  - PYREXIA [None]
  - SHOCK [None]
  - PULMONARY ALVEOLAR HAEMORRHAGE [None]
  - ACIDOSIS [None]
